FAERS Safety Report 6524260-6 (Version None)
Quarter: 2009Q4

REPORT INFORMATION
  Report Type: 
  Country: None (occurrence: None)
  Receive Date: 20091230
  Receipt Date: 20091230
  Transmission Date: 20100525
  Serious: No
  Sender: FDA-Public Use
  Company Number: None

PATIENT
  Age: 58 Year
  Sex: Female
  Weight: 162 kg

DRUGS (14)
  1. INSULIN ASPART [Suspect]
     Indication: TYPE 1 DIABETES MELLITUS
     Dosage: 30 UNITS SQTID AFTER MEALS
     Dates: start: 20091018, end: 20091019
  2. INSULIN GLARGINE [Suspect]
     Indication: TYPE 1 DIABETES MELLITUS
     Dosage: 90 UNITS SQ QHS
     Dates: start: 20091017, end: 20091018
  3. ENOXAPARIN SODIUM [Concomitant]
  4. AUGMENTIN [Concomitant]
  5. ASPIRIN [Concomitant]
  6. DIGOXIN [Concomitant]
  7. ESCITALOPRAM [Concomitant]
  8. FERROUS SUL TAB [Concomitant]
  9. FUROSEMIDE [Concomitant]
  10. LISINOPRIL [Concomitant]
  11. METOPROLOL TARTRATE [Concomitant]
  12. PRAVASTATIN [Concomitant]
  13. RANITIDINE [Concomitant]
  14. SPIROLACTONE [Concomitant]

REACTIONS (2)
  - BLOOD GLUCOSE DECREASED [None]
  - DIZZINESS [None]
